FAERS Safety Report 9276263 (Version 3)
Quarter: 2013Q3

REPORT INFORMATION
  Report Type: Report from Study
  Country: IE (occurrence: IE)
  Receive Date: 20130507
  Receipt Date: 20130919
  Transmission Date: 20140515
  Serious: Yes (Other)
  Sender: FDA-Public Use
  Company Number: PHHY2013IE044424

PATIENT
  Age: 48 Year
  Sex: Female

DRUGS (4)
  1. GILENYA [Suspect]
     Indication: RELAPSING-REMITTING MULTIPLE SCLEROSIS
     Dosage: 0.5 MG, QD
     Route: 048
     Dates: start: 20130430
  2. IDEOS [Concomitant]
     Indication: OSTEOPOROSIS
     Dosage: 1 DF, BID
     Route: 048
  3. GABAPENTIN [Concomitant]
     Indication: PAIN
     Dosage: 900 MG, UNK
     Dates: start: 2008
  4. GABAPENTIN [Concomitant]
     Dosage: 1200 MG, UNK

REACTIONS (4)
  - Electrocardiogram T wave inversion [Recovered/Resolved]
  - Atrioventricular block first degree [Recovered/Resolved]
  - Electrocardiogram PR prolongation [Recovered/Resolved]
  - Blood pressure decreased [Unknown]
